FAERS Safety Report 24264514 (Version 3)
Quarter: 2025Q3

REPORT INFORMATION
  Report Type: Spontaneous
  Country: BR (occurrence: BR)
  Receive Date: 20240829
  Receipt Date: 20250803
  Transmission Date: 20251021
  Serious: Yes (Life-Threatening, Other)
  Sender: ALEXION PHARMACEUTICALS
  Company Number: 2024A196831

PATIENT
  Sex: Female

DRUGS (1)
  1. SYMBICORT [Suspect]
     Active Substance: BUDESONIDE\FORMOTEROL FUMARATE DIHYDRATE
     Indication: Asthma
     Dosage: 160/4.5 MCG; TWO TIMES A DAY; ONE INHALATION IN THE MORNING AND ONE INHALATION IN THE EVENING
     Dates: start: 20240819

REACTIONS (4)
  - Asthmatic crisis [Unknown]
  - Device use issue [Unknown]
  - Device delivery system issue [Unknown]
  - Drug ineffective [Unknown]
